FAERS Safety Report 9176748 (Version 2)
Quarter: 2013Q1

REPORT INFORMATION
  Report Type: Spontaneous
  Country: JP (occurrence: JP)
  Receive Date: 20130321
  Receipt Date: 20130325
  Transmission Date: 20140127
  Serious: Yes (Other)
  Sender: FDA-Public Use
  Company Number: JP-PFIZER INC-2013091823

PATIENT
  Age: 8 None
  Sex: Female

DRUGS (1)
  1. CELECOX [Suspect]
     Dosage: 200 MG, 2X/DAY
     Route: 048
     Dates: start: 201302

REACTIONS (1)
  - Loss of consciousness [Recovered/Resolved]
